FAERS Safety Report 5860062-1 (Version None)
Quarter: 2008Q3

REPORT INFORMATION
  Report Type: 
  Country: None (occurrence: None)
  Receive Date: 20080827
  Receipt Date: 20080819
  Transmission Date: 20090109
  Serious: No
  Sender: FDA-Public Use
  Company Number: US-ASTRAZENECA-2008UW17011

PATIENT
  Age: 59 Year
  Sex: Male
  Weight: 108.9 kg

DRUGS (16)
  1. NEXIUM [Suspect]
     Indication: ERUCTATION
     Route: 048
  2. SYNTHROID [Concomitant]
  3. TRICOR [Concomitant]
  4. BETAPACE [Concomitant]
  5. TICLOPIDINE HCL [Concomitant]
  6. ACCUPRIL [Concomitant]
  7. ZETIA [Concomitant]
  8. ISOSORBIDE [Concomitant]
  9. TORSEMIDE [Concomitant]
  10. COLCHICINE [Concomitant]
  11. ASPIRIN [Concomitant]
  12. AZOPT [Concomitant]
  13. XALAFIN 70/30 [Concomitant]
  14. NOVOLOG [Concomitant]
  15. FLEXPEN [Concomitant]
  16. BYETTA [Concomitant]

REACTIONS (2)
  - ABDOMINAL PAIN [None]
  - DIARRHOEA [None]
